FAERS Safety Report 8813591 (Version 1)
Quarter: 2012Q4

REPORT INFORMATION
  Report Type: 
  Country: US (occurrence: US)
  Receive Date: 20120927
  Receipt Date: 20120927
  Transmission Date: 20130627
  Serious: No
  Sender: FDA-Public Use
  Company Number: US-AMGEN-USASP2012042439

PATIENT
  Age: 64 Year
  Sex: Female
  Weight: 100 kg

DRUGS (5)
  1. PROLIA [Suspect]
     Indication: OSTEOPOROSIS POSTMENOPAUSAL
     Dates: start: 20120706
  2. CALCIUM [Concomitant]
  3. BIOTIN [Concomitant]
  4. FISH OIL [Concomitant]
  5. ANTIHISTAMINE ALLERGY RELIEF [Concomitant]

REACTIONS (2)
  - Weight increased [Recovering/Resolving]
  - Weight decreased [Recovering/Resolving]
